FAERS Safety Report 19970659 (Version 1)
Quarter: 2021Q4

REPORT INFORMATION
  Report Type: Spontaneous
  Country: MY (occurrence: MY)
  Receive Date: 20211019
  Receipt Date: 20211019
  Transmission Date: 20220303
  Serious: Yes (Other)
  Sender: FDA-Public Use
  Company Number: MY-PFIZER INC-202101336078

PATIENT

DRUGS (1)
  1. AVIBACTAM SODIUM\CEFTAZIDIME [Suspect]
     Active Substance: AVIBACTAM SODIUM\CEFTAZIDIME
     Indication: Pseudomonas infection
     Dosage: UNK

REACTIONS (8)
  - Delirium tremens [Unknown]
  - Abnormal behaviour [Unknown]
  - Off label use [Unknown]
  - Product use issue [Unknown]
  - Slow response to stimuli [Unknown]
  - Memory impairment [Unknown]
  - Confusional state [Unknown]
  - Encephalopathy [Unknown]
